FAERS Safety Report 21495416 (Version 4)
Quarter: 2022Q4

REPORT INFORMATION
  Report Type: Spontaneous
  Country: US (occurrence: US)
  Receive Date: 20221022
  Receipt Date: 20221109
  Transmission Date: 20230113
  Serious: No
  Sender: FDA-Public Use
  Company Number: US-UNITED THERAPEUTICS-UNT-2022-024656

PATIENT
  Sex: Male
  Weight: 102.04 kg

DRUGS (4)
  1. REMODULIN [Suspect]
     Active Substance: TREPROSTINIL
     Indication: Pulmonary arterial hypertension
     Dosage: UNK, CONTINUING
     Route: 058
     Dates: start: 20220926
  2. REMODULIN [Suspect]
     Active Substance: TREPROSTINIL
     Dosage: 0.021 ?G/KG, CONTINUING (SELF-FILL CASSETTE WITH 2.4 ML RATE OF 26 MCL PER HOUR)
     Route: 058
     Dates: start: 2022
  3. SILDENAFIL [Concomitant]
     Active Substance: SILDENAFIL
     Indication: Product used for unknown indication
     Route: 065
  4. AMBRISENTAN [Concomitant]
     Active Substance: AMBRISENTAN
     Indication: Product used for unknown indication
     Route: 065

REACTIONS (20)
  - Diarrhoea [Not Recovered/Not Resolved]
  - Fatigue [Unknown]
  - Device leakage [Unknown]
  - Device leakage [Unknown]
  - Device leakage [Unknown]
  - Device failure [Unknown]
  - Device malfunction [Unknown]
  - Device malfunction [Unknown]
  - Device failure [Unknown]
  - Device leakage [Unknown]
  - Headache [Unknown]
  - Nausea [Unknown]
  - Pain in jaw [Unknown]
  - Device issue [Unknown]
  - Device issue [Unknown]
  - Device malfunction [Unknown]
  - Device maintenance issue [Unknown]
  - Device dislocation [Unknown]
  - Device failure [Unknown]
  - Infusion site discomfort [Unknown]

NARRATIVE: CASE EVENT DATE: 20220101
